FAERS Safety Report 17755129 (Version 1)
Quarter: 2020Q2

REPORT INFORMATION
  Report Type: Spontaneous
  Country: US (occurrence: US)
  Receive Date: 20200506
  Receipt Date: 20200506
  Transmission Date: 20200714
  Serious: Yes (Hospitalization)
  Sender: FDA-Public Use
  Company Number: None

PATIENT
  Sex: Female

DRUGS (24)
  1. GENOTROPIN [Suspect]
     Active Substance: SOMATROPIN
     Indication: HYPOPITUITARISM
     Route: 058
     Dates: start: 20160715
  2. CEFDINIR. [Concomitant]
     Active Substance: CEFDINIR
  3. TRIAM/HCTZ [Concomitant]
     Active Substance: HYDROCHLOROTHIAZIDE\TRIAMTERENE
  4. BACID [Concomitant]
     Active Substance: LACTOBACILLUS ACIDOPHILUS
  5. DOXYCYCL HYC [Concomitant]
  6. FLUCONAZOLE. [Concomitant]
     Active Substance: FLUCONAZOLE
  7. LEVOTHYROXIN [Concomitant]
     Active Substance: LEVOTHYROXINE
  8. DEXTROAMPHET SACCHARAT, AMPHET ASPARTATE, DEXTROAMPHET SULFATE AND AMPHET SULFAT [Concomitant]
     Active Substance: AMPHETAMINE ASPARTATE\AMPHETAMINE SULFATE\DEXTROAMPHETAMINE SACCHARATE\DEXTROAMPHETAMINE SULFATE
  9. MEGESTROL AC [Concomitant]
  10. TRAMADOL HCL [Concomitant]
     Active Substance: TRAMADOL HYDROCHLORIDE
  11. GENOTROPIN [Suspect]
     Active Substance: SOMATROPIN
     Indication: HYPOPITUITARISM
     Route: 058
     Dates: start: 20160715
  12. DICLOFENAC [Concomitant]
     Active Substance: DICLOFENAC
  13. PREDNISONE. [Concomitant]
     Active Substance: PREDNISONE
  14. ELIQUIS [Concomitant]
     Active Substance: APIXABAN
  15. LEVOFLOXACIN. [Concomitant]
     Active Substance: LEVOFLOXACIN
  16. CROMOLYN SOD [Concomitant]
     Active Substance: CROMOLYN SODIUM
  17. PANTOPRAZOLE [Concomitant]
     Active Substance: PANTOPRAZOLE
  18. TRIOSINT [Concomitant]
  19. MELOXICAM. [Concomitant]
     Active Substance: MELOXICAM
  20. MIRTAZAPINE. [Concomitant]
     Active Substance: MIRTAZAPINE
  21. POT CL MICRO [Concomitant]
  22. DEXAMETH PHO [Concomitant]
  23. FLUDROCORT [Concomitant]
  24. GABAPENTIN. [Concomitant]
     Active Substance: GABAPENTIN

REACTIONS (2)
  - Malnutrition [None]
  - Abdominal abscess [None]
